FAERS Safety Report 24922490 (Version 1)
Quarter: 2025Q1

REPORT INFORMATION
  Report Type: Spontaneous
  Country: US (occurrence: None)
  Receive Date: 20250203
  Receipt Date: 20250203
  Transmission Date: 20250408
  Serious: Yes (Hospitalization, Disabling)
  Sender: FDA-CTU
  Company Number: None

PATIENT
  Age: 52 Year
  Sex: Male
  Weight: 109.8 kg

DRUGS (5)
  1. OCRELIZUMAB [Suspect]
     Active Substance: OCRELIZUMAB
     Indication: Multiple sclerosis
     Route: 041
     Dates: start: 20230406
  2. BACLOFEN [Concomitant]
     Active Substance: BACLOFEN
  3. tamsulosin 0.4 [Concomitant]
  4. Cholecalciferol (Vitamin D3) 50 mcg (2,000 unit) Ta [Concomitant]
  5. dextroamphetamine-amphetamine 20 mg Tab [Concomitant]

REACTIONS (6)
  - Paraplegia [None]
  - Hypoaesthesia [None]
  - Urinary incontinence [None]
  - Spinal disorder [None]
  - Ill-defined disorder [None]
  - Condition aggravated [None]

NARRATIVE: CASE EVENT DATE: 20230418
